FAERS Safety Report 20610782 (Version 1)
Quarter: 2022Q1

REPORT INFORMATION
  Report Type: Spontaneous
  Country: CN (occurrence: CN)
  Receive Date: 20220318
  Receipt Date: 20220318
  Transmission Date: 20220424
  Serious: Yes (Other)
  Sender: FDA-Public Use
  Company Number: CN-ABBVIE-22K-035-4321068-00

PATIENT
  Age: 74 Year
  Sex: Female
  Weight: 60 kg

DRUGS (4)
  1. VALPROATE SODIUM [Suspect]
     Active Substance: VALPROATE SODIUM
     Indication: Psychiatric disorder prophylaxis
     Dosage: EVERY NIGHT
     Route: 048
     Dates: start: 20200316, end: 2020
  2. VALPROATE SODIUM [Suspect]
     Active Substance: VALPROATE SODIUM
     Dosage: 250 MG QD AND 500 MG EVERY NIGHT
     Route: 048
     Dates: start: 20200407, end: 20200423
  3. VALPROATE SODIUM [Suspect]
     Active Substance: VALPROATE SODIUM
     Dosage: GRADUALLY DECREASED
     Route: 048
  4. OLANZAPINE [Concomitant]
     Active Substance: OLANZAPINE
     Indication: Product used for unknown indication
     Route: 065

REACTIONS (1)
  - Dystonia [Recovering/Resolving]

NARRATIVE: CASE EVENT DATE: 20200414
